FAERS Safety Report 4899956-2 (Version None)
Quarter: 2006Q1

REPORT INFORMATION
  Report Type: 
  Country: None (occurrence: None)
  Receive Date: 20060203
  Receipt Date: 20060125
  Transmission Date: 20060701
  Serious: Yes (Other)
  Sender: FDA-Public Use
  Company Number: GB-GLAXOSMITHKLINE-B0408098A

PATIENT
  Sex: Male

DRUGS (1)
  1. NIQUITIN CQ LOZENGE [Suspect]
     Route: 002

REACTIONS (1)
  - DRUG DEPENDENCE [None]
